FAERS Safety Report 21402317 (Version 2)
Quarter: 2023Q2

REPORT INFORMATION
  Report Type: Spontaneous
  Country: US (occurrence: US)
  Receive Date: 20221003
  Receipt Date: 20230411
  Transmission Date: 20230721
  Serious: Yes (Death)
  Sender: FDA-Public Use
  Company Number: US-ELI_LILLY_AND_COMPANY-US202209013684

PATIENT
  Sex: Female

DRUGS (2)
  1. ERBITUX [Suspect]
     Active Substance: CETUXIMAB
     Indication: Product used for unknown indication
     Dosage: UNK UNK, UNKNOWN
     Route: 065
     Dates: start: 20220614
  2. ERBITUX [Suspect]
     Active Substance: CETUXIMAB
     Dosage: 1000 MG, UNKNOWN
     Route: 065

REACTIONS (1)
  - Death [Fatal]
